FAERS Safety Report 20994047 (Version 1)
Quarter: 2022Q2

REPORT INFORMATION
  Report Type: Spontaneous
  Country: IT (occurrence: IT)
  Receive Date: 20220622
  Receipt Date: 20220622
  Transmission Date: 20220721
  Serious: Yes (Death)
  Sender: FDA-Public Use
  Company Number: IT-STADA-250744

PATIENT
  Age: 56 Year
  Sex: Male

DRUGS (3)
  1. FINGOLIMOD [Suspect]
     Active Substance: FINGOLIMOD
     Indication: Multiple sclerosis
     Dosage: UNK
  2. DRONABINOL [Suspect]
     Active Substance: DRONABINOL
     Indication: Muscle spasms
     Dosage: UNK
  3. CANNABIDIOL [Suspect]
     Active Substance: CANNABIDIOL
     Indication: Muscle spasms
     Dosage: UNK

REACTIONS (1)
  - Cardiac arrest [Fatal]
